FAERS Safety Report 9344878 (Version 2)
Quarter: 2014Q2

REPORT INFORMATION
  Report Type: Report from Study
  Country: US (occurrence: US)
  Receive Date: 20130612
  Receipt Date: 20140610
  Transmission Date: 20141212
  Serious: Yes (Hospitalization)
  Sender: FDA-Public Use
  Company Number: US-GLAXOSMITHKLINE-Z0017669A

PATIENT
  Age: 78 Year
  Sex: Male
  Weight: 62.3 kg

DRUGS (1)
  1. TRAMETINIB [Suspect]
     Dosage: 3MG PER DAY
     Route: 048
     Dates: start: 20121030

REACTIONS (4)
  - Vomiting [Recovered/Resolved]
  - Nausea [Recovered/Resolved]
  - Dehydration [Recovered/Resolved]
  - Pyrexia [Recovered/Resolved]
